FAERS Safety Report 8890492 (Version 1)
Quarter: 2012Q4

REPORT INFORMATION
  Report Type: Report from Study
  Country: PL (occurrence: PL)
  Receive Date: 20121107
  Receipt Date: 20121107
  Transmission Date: 20130627
  Serious: No
  Sender: FDA-Public Use
  Company Number: PHHY2012PL097607

PATIENT

DRUGS (9)
  1. AMN107 [Suspect]
     Dosage: 800 mg, 24 hour
  2. BELOC ZOK [Concomitant]
  3. POLFENON [Concomitant]
  4. SIMVAHEXAL [Concomitant]
  5. SPIRONOL [Concomitant]
  6. ATROVENT [Concomitant]
  7. ELTROXIN [Concomitant]
  8. VERDINA [Concomitant]
  9. MOVMAX [Concomitant]

REACTIONS (1)
  - Bone pain [Not Recovered/Not Resolved]
